FAERS Safety Report 8218666-7 (Version None)
Quarter: 2012Q1

REPORT INFORMATION
  Report Type: 
  Country: None (occurrence: None)
  Receive Date: 20120319
  Receipt Date: 20120305
  Transmission Date: 20120608
  Serious: Yes (Hospitalization)
  Sender: FDA-Public Use
  Company Number: PHHY2012JP020433

PATIENT
  Age: 36 Year
  Sex: Male

DRUGS (2)
  1. CYCLOSPORINE [Suspect]
     Indication: BONE MARROW TRANSPLANT
  2. METHOTREXATE [Concomitant]
     Indication: BONE MARROW TRANSPLANT

REACTIONS (2)
  - EOSINOPHILIC PNEUMONIA ACUTE [None]
  - ACUTE GRAFT VERSUS HOST DISEASE [None]
